FAERS Safety Report 15790009 (Version 1)
Quarter: 2019Q1

REPORT INFORMATION
  Report Type: Spontaneous
  Country: US (occurrence: US)
  Receive Date: 20190104
  Receipt Date: 20190104
  Transmission Date: 20190417
  Serious: No
  Sender: FDA-Public Use
  Company Number: US-SUNOVION-2018SUN005053

PATIENT
  Sex: Female

DRUGS (1)
  1. LUNESTA [Suspect]
     Active Substance: ESZOPICLONE
     Indication: INSOMNIA
     Dosage: 3 MG, HS
     Route: 048
     Dates: start: 20181215

REACTIONS (9)
  - Nasopharyngitis [Unknown]
  - Abdominal pain upper [Unknown]
  - Somnolence [Unknown]
  - Headache [Unknown]
  - Dysgeusia [Unknown]
  - Flatulence [Unknown]
  - Abdominal distension [Unknown]
  - Dizziness [Unknown]
  - Diarrhoea [Unknown]

NARRATIVE: CASE EVENT DATE: 201812
